FAERS Safety Report 19670777 (Version 1)
Quarter: 2021Q3

REPORT INFORMATION
  Report Type: Other
  Country: US (occurrence: US)
  Receive Date: 20210806
  Receipt Date: 20210806
  Transmission Date: 20211014
  Serious: Yes (Other)
  Sender: FDA-Public Use
  Company Number: US-APOTEX-2021AP030720

PATIENT
  Age: 65 Year
  Sex: Male

DRUGS (2)
  1. RANITIDINE TABLETS [Suspect]
     Active Substance: RANITIDINE HYDROCHLORIDE
     Indication: GASTROOESOPHAGEAL REFLUX DISEASE
     Dosage: OTHER (AS DIRECTED ON THE DIRECTIONS 1 A DAY, IF NEEDED 2, BUT NO MORE THAN 2 IN A 24 HOUR PERIOD.)
     Route: 065
     Dates: start: 201001, end: 201701
  2. ZANTAC [Suspect]
     Active Substance: RANITIDINE HYDROCHLORIDE
     Indication: GASTROOESOPHAGEAL REFLUX DISEASE
     Dosage: OTHER (WAS TAKEN AS DIRECTIONS DESCRIBE. ONE TABLET A DAY IF NEEDED A SECOND IF NEEDED. NO MORE THAN
     Route: 065
     Dates: start: 201001, end: 201701

REACTIONS (1)
  - Bladder cancer [Unknown]

NARRATIVE: CASE EVENT DATE: 20170901
